FAERS Safety Report 15075546 (Version 1)
Quarter: 2018Q2

REPORT INFORMATION
  Report Type: Report from Study
  Country: US (occurrence: US)
  Receive Date: 20180627
  Receipt Date: 20180627
  Transmission Date: 20180711
  Serious: Yes (Other)
  Sender: FDA-Public Use
  Company Number: US-SAOL THERAPEUTICS-2018SAO00439

PATIENT
  Age: 74 Year
  Sex: Female
  Weight: 63.49 kg

DRUGS (16)
  1. MOPRHINE [Suspect]
     Active Substance: MORPHINE
     Dosage: 0.4705 ?G, \DAY
     Route: 037
     Dates: start: 20150526, end: 20150708
  2. VOLTAREN [Concomitant]
     Active Substance: DICLOFENAC SODIUM
  3. BACLOFEN. [Suspect]
     Active Substance: BACLOFEN
     Dosage: 18.01 ?G, \DAY
     Route: 037
     Dates: start: 20150526, end: 20150708
  4. MORPHINE [Suspect]
     Active Substance: MORPHINE
     Dosage: 2.75 MG, \DAY
     Route: 037
  5. ALBUTEROL. [Concomitant]
     Active Substance: ALBUTEROL
  6. IRON [Concomitant]
     Active Substance: IRON
  7. NEXIUM [Concomitant]
     Active Substance: ESOMEPRAZOLE MAGNESIUM
  8. PULMICORT TURBUHALER [Concomitant]
     Active Substance: BUDESONIDE
  9. BACLOFEN. [Suspect]
     Active Substance: BACLOFEN
     Dosage: 2.28 ?G, \DAY
     Route: 037
     Dates: start: 20150708
  10. ADVAIR HFA [Concomitant]
     Active Substance: FLUTICASONE PROPIONATE\SALMETEROL XINAFOATE
  11. LASIX [Concomitant]
     Active Substance: FUROSEMIDE
  12. VITAMIN C [Concomitant]
     Active Substance: ASCORBIC ACID
  13. VITAMIN D [Concomitant]
     Active Substance: CHOLECALCIFEROL
  14. MOPRHINE [Suspect]
     Active Substance: MORPHINE
     Dosage: 0.4705 ?G, \DAY
     Route: 037
     Dates: start: 20150708
  15. GABAPENTIN. [Concomitant]
     Active Substance: GABAPENTIN
  16. LIDODERM [Concomitant]
     Active Substance: LIDOCAINE
     Route: 062

REACTIONS (8)
  - Oedema peripheral [Recovered/Resolved]
  - Dysuria [Not Recovered/Not Resolved]
  - Constipation [Not Recovered/Not Resolved]
  - Device dislocation [Recovered/Resolved]
  - Hyperhidrosis [Not Recovered/Not Resolved]
  - Nausea [Not Recovered/Not Resolved]
  - Pain [Recovered/Resolved]
  - Complication associated with device [Recovered/Resolved]

NARRATIVE: CASE EVENT DATE: 20150708
